FAERS Safety Report 10939172 (Version 2)
Quarter: 2015Q2

REPORT INFORMATION
  Report Type: Spontaneous
  Country: US (occurrence: US)
  Receive Date: 20150322
  Receipt Date: 20150525
  Transmission Date: 20150821
  Serious: No
  Sender: FDA-Public Use
  Company Number: US-JNJFOC-20141207677

PATIENT
  Age: 50 Year
  Sex: Female
  Weight: 61.24 kg

DRUGS (3)
  1. EFFEXOR [Concomitant]
     Active Substance: VENLAFAXINE HYDROCHLORIDE
     Route: 065
  2. IMITREX [Concomitant]
     Active Substance: SUMATRIPTAN\SUMATRIPTAN SUCCINATE
     Indication: HEADACHE
     Route: 065
  3. NUCYNTA [Suspect]
     Active Substance: TAPENTADOL HYDROCHLORIDE
     Indication: HEADACHE
     Dosage: TWICE A DAY
     Route: 048
     Dates: start: 20141124

REACTIONS (7)
  - Drug dose omission [Not Recovered/Not Resolved]
  - Abdominal pain upper [Not Recovered/Not Resolved]
  - Product use issue [Unknown]
  - Dry mouth [Not Recovered/Not Resolved]
  - Feeling abnormal [Unknown]
  - Dyspepsia [Not Recovered/Not Resolved]
  - Impaired driving ability [Unknown]

NARRATIVE: CASE EVENT DATE: 20141124
